FAERS Safety Report 9809061 (Version 1)
Quarter: 2014Q1

REPORT INFORMATION
  Report Type: Spontaneous
  Country: US (occurrence: US)
  Receive Date: 20140110
  Receipt Date: 20140110
  Transmission Date: 20141002
  Serious: Yes (Other)
  Sender: FDA-Public Use
  Company Number: PHEH2014US000854

PATIENT
  Age: 42 Year
  Sex: Female

DRUGS (6)
  1. FANAPT [Suspect]
     Dosage: 1 MG, BID
     Route: 048
     Dates: start: 20140106, end: 20140107
  2. LITHIUM [Concomitant]
     Dosage: UNK UKN, UNK
  3. DEPAKOTE [Concomitant]
     Dosage: UNK UKN, UNK
  4. VALIUM [Concomitant]
     Dosage: UNK UKN, UNK
  5. ADDERALL [Concomitant]
     Dosage: UNK UKN, UNK
  6. PROZAC [Concomitant]
     Dosage: UNK UKN, UNK

REACTIONS (3)
  - Swollen tongue [Unknown]
  - Lip swelling [Unknown]
  - Dysphagia [Unknown]
